FAERS Safety Report 21616421 (Version 1)
Quarter: 2022Q4

REPORT INFORMATION
  Report Type: Spontaneous
  Country: US (occurrence: US)
  Receive Date: 20221118
  Receipt Date: 20221118
  Transmission Date: 20230113
  Serious: Yes (Other)
  Sender: FDA-Public Use
  Company Number: US-ASTELLAS-2022US040834

PATIENT
  Age: 78 Year
  Sex: Female

DRUGS (4)
  1. MYRBETRIQ [Suspect]
     Active Substance: MIRABEGRON
     Indication: Product used for unknown indication
     Dosage: UNK UNK, ONCE DAILY
     Route: 065
     Dates: start: 202011, end: 2020
  2. MYRBETRIQ [Suspect]
     Active Substance: MIRABEGRON
     Dosage: UNK UNK, ONCE DAILY
     Route: 065
     Dates: start: 202110, end: 2021
  3. MYRBETRIQ [Suspect]
     Active Substance: MIRABEGRON
     Dosage: UNK UNK, UNKNOWN FREQ.
     Route: 065
     Dates: start: 202201, end: 2022
  4. MYRBETRIQ [Suspect]
     Active Substance: MIRABEGRON
     Route: 065
     Dates: start: 20221016, end: 20221114

REACTIONS (13)
  - Migraine [Unknown]
  - Pancreatic neoplasm [Unknown]
  - Visual impairment [Unknown]
  - Vision blurred [Unknown]
  - Insomnia [Unknown]
  - Diplopia [Unknown]
  - Dizziness [Unknown]
  - Vertigo [Unknown]
  - Tinnitus [Unknown]
  - Fall [Unknown]
  - Back pain [Unknown]
  - Bladder pain [Unknown]
  - Constipation [Unknown]

NARRATIVE: CASE EVENT DATE: 20200101
